FAERS Safety Report 9197097 (Version 2)
Quarter: 2013Q4

REPORT INFORMATION
  Report Type: Spontaneous
  Country: FR (occurrence: FR)
  Receive Date: 20130328
  Receipt Date: 20131014
  Transmission Date: 20140711
  Serious: Yes (Hospitalization)
  Sender: FDA-Public Use
  Company Number: FR-ROCHE-1205604

PATIENT
  Age: 79 Year
  Sex: Female

DRUGS (7)
  1. ROCEPHINE [Suspect]
     Indication: LUNG INFECTION
     Route: 048
     Dates: start: 20130212
  2. TAVANIC [Suspect]
     Indication: PRODUCT USED FOR UNKNOWN INDICATION
     Route: 065
     Dates: start: 20130212
  3. LASILIX [Concomitant]
     Route: 065
  4. LEVOTHYROX [Concomitant]
     Route: 065
  5. AMIODARONE [Concomitant]
     Dosage: 5 DAYS/7DAYS
     Route: 065
  6. KARDEGIC [Concomitant]
     Route: 065
  7. UVEDOSE [Concomitant]
     Route: 065

REACTIONS (2)
  - Erythema [Recovered/Resolved]
  - Pruritus [Recovered/Resolved]
